FAERS Safety Report 11627739 (Version 3)
Quarter: 2015Q4

REPORT INFORMATION
  Report Type: Report from Study
  Country: FR (occurrence: FR)
  Receive Date: 20151014
  Receipt Date: 20151126
  Transmission Date: 20160304
  Serious: Yes (Hospitalization)
  Sender: FDA-Public Use
  Company Number: FR-ROCHE-1271995

PATIENT
  Age: 67 Year
  Sex: Female
  Weight: 86 kg

DRUGS (8)
  1. VINORELBINE [Suspect]
     Active Substance: VINORELBINE\VINORELBINE TARTRATE
     Indication: HER-2 POSITIVE BREAST CANCER
     Dosage: LAST DOSE PRIOR TO TACHYCARDIA: 16/AUG/2013
     Route: 042
     Dates: start: 20130425
  2. TRASTUZUMAB [Suspect]
     Active Substance: TRASTUZUMAB
     Indication: HER-2 POSITIVE BREAST CANCER
     Dosage: LOADING DOSE CYCLE 1 ONLY AS PER PROTOCOL
     Route: 042
     Dates: start: 20130425, end: 20130425
  3. PERTUZUMAB [Suspect]
     Active Substance: PERTUZUMAB
     Indication: HER-2 POSITIVE BREAST CANCER
     Dosage: LOADING DOSE CYCLE 1 ONLY AS PER PROTOCOL
     Route: 042
     Dates: start: 20130424, end: 20130424
  4. INNOHEP [Concomitant]
     Active Substance: TINZAPARIN SODIUM
     Route: 065
     Dates: start: 20121231
  5. TRASTUZUMAB [Suspect]
     Active Substance: TRASTUZUMAB
     Dosage: MAINTENANCE DOSE AS PER PROTOCOL?LAST DOSE PRIOR TO TACHYCARDIA: 08/AUG/2013
     Route: 042
  6. PERTUZUMAB [Suspect]
     Active Substance: PERTUZUMAB
     Dosage: MAINTENANCE DOSE AS PER PROTOCOL?DATE OF LAST DOSE PRIOR TO TACHYCARDIA: 08/AUG/2013
     Route: 042
  7. ZARZIO [Concomitant]
     Active Substance: FILGRASTIM
     Indication: NEUTROPENIA
     Route: 065
  8. OFLOXACIN. [Concomitant]
     Active Substance: OFLOXACIN
     Indication: URINARY TRACT INFECTION

REACTIONS (1)
  - Tachycardia [Recovered/Resolved]

NARRATIVE: CASE EVENT DATE: 20130821
